FAERS Safety Report 5356816-0 (Version None)
Quarter: 2007Q2

REPORT INFORMATION
  Report Type: 
  Country: None (occurrence: None)
  Receive Date: 20070614
  Receipt Date: 20070606
  Transmission Date: 20071010
  Serious: Yes (Death, Hospitalization, Other)
  Sender: FDA-Public Use
  Company Number: BR-ROCHE-494599

PATIENT
  Age: 52 Year
  Sex: Male

DRUGS (3)
  1. PEGASYS [Suspect]
     Indication: HEPATITIS C
     Dosage: STRENGTH AND FORMULATION REPORTED AS 180MCG/0,5 ML.
     Route: 058
     Dates: start: 20070301, end: 20070705
  2. RIBAVIRIN (NON-ROCHE) [Concomitant]
     Indication: HEPATITIS C
     Route: 048
     Dates: start: 20070301, end: 20070605
  3. INSULIN [Concomitant]
     Route: 058
     Dates: end: 20070605

REACTIONS (9)
  - ABSCESS LIMB [None]
  - APPLICATION SITE ERYTHEMA [None]
  - DRUG ADMINISTRATION ERROR [None]
  - INFECTION [None]
  - INTERMITTENT CLAUDICATION [None]
  - OEDEMA PERIPHERAL [None]
  - PAIN IN EXTREMITY [None]
  - SEPSIS [None]
  - SKIN INFECTION [None]
